FAERS Safety Report 9283460 (Version 1)
Quarter: 2013Q2

REPORT INFORMATION
  Report Type: Spontaneous
  Country: FR (occurrence: FR)
  Receive Date: 20130510
  Receipt Date: 20130510
  Transmission Date: 20140414
  Serious: Yes (Other)
  Sender: FDA-Public Use
  Company Number: PHHY2013FR044870

PATIENT
  Age: 78 Year
  Sex: Male

DRUGS (10)
  1. AMOXICILLIN+CLAVULANATE SANDOZ [Suspect]
     Indication: PNEUMONIA ASPIRATION
     Dosage: 3 G, QD
     Route: 042
     Dates: start: 20130311, end: 20130318
  2. APROVEL [Concomitant]
  3. BISOCE [Concomitant]
  4. XELEVIA [Concomitant]
  5. TAHOR [Concomitant]
  6. PRAXILENE [Concomitant]
  7. KARDEGIC [Concomitant]
  8. DIAMICRON [Concomitant]
  9. LOVENOX [Concomitant]
  10. LYRICA [Concomitant]

REACTIONS (9)
  - Renal failure acute [Recovered/Resolved]
  - Eosinophilia [Recovered/Resolved]
  - Acute generalised exanthematous pustulosis [Recovered/Resolved]
  - Renal function test abnormal [Recovered/Resolved]
  - Inflammation [Recovered/Resolved]
  - Skin exfoliation [Recovered/Resolved]
  - Erythema [Recovered/Resolved]
  - Skin plaque [Recovered/Resolved]
  - Rash pustular [Recovered/Resolved]
